FAERS Safety Report 6799952-4 (Version None)
Quarter: 2010Q2

REPORT INFORMATION
  Report Type: 
  Country: None (occurrence: None)
  Receive Date: 20100617
  Receipt Date: 20100609
  Transmission Date: 20101027
  Serious: Yes (Hospitalization)
  Sender: FDA-Public Use
  Company Number: 2010SP032472

PATIENT
  Age: 30 Year
  Sex: Male

DRUGS (4)
  1. REMERON [Suspect]
     Indication: SLEEP DISORDER
     Dosage: 30 MG;QD;PO
     Route: 048
     Dates: end: 20100420
  2. ESCITALOPRAM OXALATE [Suspect]
     Indication: DEPRESSION
     Dosage: 20 MG;QD;PO
     Route: 048
     Dates: end: 20100420
  3. ZYPREXA [Suspect]
     Indication: DRUG USE FOR UNKNOWN INDICATION
     Dosage: 10 MG;QD;PO
     Route: 048
  4. ZOLPIDEM [Concomitant]

REACTIONS (3)
  - COMA SCALE ABNORMAL [None]
  - DRUG INTERACTION [None]
  - SEROTONIN SYNDROME [None]
